FAERS Safety Report 16201424 (Version 4)
Quarter: 2019Q2

REPORT INFORMATION
  Report Type: Report from Study
  Country: FR (occurrence: FR)
  Receive Date: 20190416
  Receipt Date: 20190611
  Transmission Date: 20190711
  Serious: Yes (Hospitalization)
  Sender: FDA-Public Use
  Company Number: FR-ROCHE-2302015

PATIENT
  Age: 44 Year
  Sex: Male

DRUGS (5)
  1. COBIMETINIB. [Suspect]
     Active Substance: COBIMETINIB
     Indication: MALIGNANT MELANOMA
     Dosage: MOST RECENT DOSE PRIOR TO EVENT ON 08/APR/2019
     Route: 048
     Dates: start: 20181123
  2. VEMURAFENIB. [Suspect]
     Active Substance: VEMURAFENIB
     Indication: MALIGNANT MELANOMA
     Dosage: MOST RECENT DOSE PRIOR TO EVENT ON 08/APR/2019
     Route: 048
     Dates: start: 20181123
  3. SMECTA [Concomitant]
     Active Substance: MONTMORILLONITE
  4. TIORFAN [Concomitant]
     Active Substance: RACECADOTRIL
  5. CLARADOL [Concomitant]
     Active Substance: ACETAMINOPHEN

REACTIONS (1)
  - Dermo-hypodermitis [Not Recovered/Not Resolved]

NARRATIVE: CASE EVENT DATE: 20190409
